FAERS Safety Report 12354892 (Version 1)
Quarter: 2016Q2

REPORT INFORMATION
  Report Type: Spontaneous
  Country: US (occurrence: US)
  Receive Date: 20160511
  Receipt Date: 20160511
  Transmission Date: 20160815
  Serious: Yes (Other)
  Sender: FDA-Public Use
  Company Number: US-TEVA-658424USA

PATIENT
  Sex: Female

DRUGS (1)
  1. TAMOXIFEN [Suspect]
     Active Substance: TAMOXIFEN
     Route: 065

REACTIONS (5)
  - Asthenia [Unknown]
  - Gait disturbance [Unknown]
  - Bedridden [Unknown]
  - Metastases to bone [Unknown]
  - Back pain [Unknown]
